FAERS Safety Report 6672422-X (Version None)
Quarter: 2010Q2

REPORT INFORMATION
  Report Type: 
  Country: None (occurrence: None)
  Receive Date: 20100406
  Receipt Date: 20100323
  Transmission Date: 20101027
  Serious: Yes (Other)
  Sender: FDA-Public Use
  Company Number: 009226

PATIENT
  Age: 57 Year
  Sex: Female

DRUGS (2)
  1. PROSTANDIN          (PROSTANDIN) [Suspect]
     Dosage: 10NG/ KG/MIN INTRVENOUS DRIP
     Route: 041
  2. UROKINASE [Concomitant]

REACTIONS (1)
  - POST PROCEDURAL HAEMORRHAGE [None]
